FAERS Safety Report 4502448-3 (Version None)
Quarter: 2004Q4

REPORT INFORMATION
  Report Type: 
  Country: None (occurrence: None)
  Receive Date: 20041112
  Receipt Date: 20041102
  Transmission Date: 20050328
  Serious: Yes (Death)
  Sender: FDA-Public Use
  Company Number: HQWYE338310NOV04

PATIENT
  Age: 75 Year

DRUGS (1)
  1. RAPAMUNE [Suspect]
     Indication: MYELODYSPLASTIC SYNDROME
     Dosage: SEE IMAGE
     Route: 048

REACTIONS (4)
  - HEPATIC FAILURE [None]
  - HEPATITIS B [None]
  - HEPATITIS POST TRANSFUSION [None]
  - PYREXIA [None]
